FAERS Safety Report 22868499 (Version 3)
Quarter: 2023Q4

REPORT INFORMATION
  Report Type: Report from Study
  Country: AU (occurrence: AU)
  Receive Date: 20230825
  Receipt Date: 20231113
  Transmission Date: 20240110
  Serious: Yes (Life-Threatening, Other)
  Sender: FDA-Public Use
  Company Number: AU-BAYER-2023A115088

PATIENT
  Age: 17 Year
  Sex: Female

DRUGS (4)
  1. REGORAFENIB [Suspect]
     Active Substance: REGORAFENIB
     Indication: Ewing^s sarcoma recurrent
     Dosage: 120 MG, QD
     Dates: start: 20230801
  2. REGORAFENIB [Suspect]
     Active Substance: REGORAFENIB
     Indication: Ewing^s sarcoma recurrent
     Dosage: 80 MG, QD
     Dates: end: 20230808
  3. MS CONTIN [Concomitant]
     Active Substance: MORPHINE SULFATE
     Indication: Pain
     Dosage: 10 MG, BID
     Route: 048
  4. OXYCODONE [Concomitant]
     Active Substance: OXYCODONE
     Indication: Pain
     Dosage: 5 MG
     Route: 048

REACTIONS (2)
  - Sarcoma metastatic [Not Recovered/Not Resolved]
  - Neutropenia [Recovered/Resolved]

NARRATIVE: CASE EVENT DATE: 20230801
